FAERS Safety Report 25123544 (Version 1)
Quarter: 2025Q1

REPORT INFORMATION
  Report Type: Spontaneous
  Country: US (occurrence: US)
  Receive Date: 20250326
  Receipt Date: 20250326
  Transmission Date: 20250409
  Serious: No
  Sender: GRIFOLS
  Company Number: US-IGSA-BIG0032071

PATIENT
  Sex: Female
  Weight: 43.991 kg

DRUGS (7)
  1. PROLASTIN-C LIQUID [Suspect]
     Active Substance: .ALPHA.1-PROTEINASE INHIBITOR HUMAN
     Indication: Alpha-1 antitrypsin deficiency
     Dosage: 2646 MILLIGRAM, Q.WK.
     Route: 042
  2. EPINEPHRINE [Concomitant]
     Active Substance: EPINEPHRINE
  3. SODIUM CHLORIDE [Concomitant]
     Active Substance: SODIUM CHLORIDE
  4. PREDNISONE [Concomitant]
     Active Substance: PREDNISONE
     Route: 048
  5. GUAIFENESIN [Concomitant]
     Active Substance: GUAIFENESIN
     Route: 048
  6. LORATADINE [Concomitant]
     Active Substance: LORATADINE
     Route: 048
  7. HYDROXYZINE HYDROCHLORIDE [Concomitant]
     Active Substance: HYDROXYZINE HYDROCHLORIDE
     Route: 048

REACTIONS (2)
  - Infusion site extravasation [Recovered/Resolved]
  - Vein rupture [Recovered/Resolved]
